FAERS Safety Report 5090563-8 (Version None)
Quarter: 2006Q3

REPORT INFORMATION
  Report Type: 
  Country: None (occurrence: None)
  Receive Date: 20060828
  Receipt Date: 20060607
  Transmission Date: 20061208
  Serious: Yes (Hospitalization)
  Sender: FDA-Public Use
  Company Number: US-GLAXOSMITHKLINE-A0608229A

PATIENT
  Sex: Female

DRUGS (11)
  1. WELLBUTRIN [Suspect]
     Indication: DEPRESSION
     Dosage: 300MG PER DAY
     Route: 048
  2. TRAZODONE HCL [Concomitant]
  3. BUSPAR [Concomitant]
  4. ZOLOFT [Concomitant]
  5. NEURONTIN [Concomitant]
  6. HYDROCHLOROTHIAZIDE [Concomitant]
  7. CLONIDINE [Concomitant]
  8. ALTACE [Concomitant]
  9. BENICAR [Concomitant]
  10. VERAPAMIL [Concomitant]
  11. TOPROL-XL [Concomitant]

REACTIONS (2)
  - LOBAR PNEUMONIA [None]
  - PANCREATITIS [None]
